FAERS Safety Report 18231853 (Version 1)
Quarter: 2020Q3

REPORT INFORMATION
  Report Type: Spontaneous
  Country: FR (occurrence: FR)
  Receive Date: 20200904
  Receipt Date: 20200904
  Transmission Date: 20201103
  Serious: Yes (Other)
  Sender: FDA-Public Use
  Company Number: FR-REGENERON PHARMACEUTICALS, INC.-2019-74860

PATIENT

DRUGS (4)
  1. LIBTAYO [Suspect]
     Active Substance: CEMIPLIMAB-RWLC
     Indication: SQUAMOUS CELL CARCINOMA
     Dosage: 3 MG/KG, QOW
     Route: 042
     Dates: start: 20190109, end: 20191120
  2. BISOPROLOL [Concomitant]
     Active Substance: BISOPROLOL
     Indication: ARRHYTHMIA
     Dosage: 10 MG, QD
     Route: 065
     Dates: start: 2017
  3. INNOHEP [Concomitant]
     Active Substance: TINZAPARIN SODIUM
     Indication: THROMBOSIS
     Dosage: 10000 UNK
     Route: 042
     Dates: start: 2017
  4. DIGOXIN. [Concomitant]
     Active Substance: DIGOXIN
     Indication: ATRIAL FIBRILLATION

REACTIONS (4)
  - Disease progression [Unknown]
  - Haemorrhagic disorder [Unknown]
  - Haematuria [Unknown]
  - Disease recurrence [Unknown]

NARRATIVE: CASE EVENT DATE: 201911
